FAERS Safety Report 4851300-2 (Version None)
Quarter: 2005Q4

REPORT INFORMATION
  Report Type: 
  Country: None (occurrence: None)
  Receive Date: 20051207
  Receipt Date: 20051123
  Transmission Date: 20060501
  Serious: Yes (Other)
  Sender: FDA-Public Use
  Company Number: B0401446A

PATIENT
  Age: 73 Year
  Sex: Male

DRUGS (7)
  1. CARVEDILOL [Suspect]
     Dosage: 5 MG / ORAL
     Route: 048
  2. NIFEDIPINE [Suspect]
     Dosage: 20 MG / ORAL
     Route: 048
  3. NICARDIPINE HCL [Suspect]
  4. DOXAZOSIN MESYLATE [Suspect]
     Dosage: 2 MG / ORAL
     Route: 048
  5. NITROGLYCERIN [Concomitant]
  6. FRUSEMIDE [Concomitant]
  7. DOPAMINE HCL [Concomitant]

REACTIONS (5)
  - CAROTID ARTERY STENOSIS [None]
  - CEREBELLAR INFARCTION [None]
  - HEMIPLEGIA [None]
  - HYPOAESTHESIA [None]
  - SOMNOLENCE [None]
